FAERS Safety Report 6384906-2 (Version None)
Quarter: 2009Q4

REPORT INFORMATION
  Report Type: 
  Country: None (occurrence: None)
  Receive Date: 20091002
  Receipt Date: 20090925
  Transmission Date: 20100525
  Serious: Yes (Other)
  Sender: FDA-Public Use
  Company Number: US-ELI_LILLY_AND_COMPANY-US200909007163

PATIENT
  Sex: Female

DRUGS (5)
  1. HUMULIN R [Suspect]
  2. HUMULIN 70/30 [Suspect]
  3. CIPRO [Concomitant]
  4. ZYVOX [Concomitant]
  5. SULFAMETHOXAZOLE AND TRIMETHOPRIM [Concomitant]

REACTIONS (5)
  - BLADDER OPERATION [None]
  - CANDIDIASIS [None]
  - EPISTAXIS [None]
  - HEPATIC CIRRHOSIS [None]
  - LOSS OF CONSCIOUSNESS [None]
